FAERS Safety Report 8125792-X (Version None)
Quarter: 2012Q1

REPORT INFORMATION
  Report Type: 
  Country: None (occurrence: None)
  Receive Date: 20120209
  Receipt Date: 20120202
  Transmission Date: 20120608
  Serious: Yes (Other)
  Sender: FDA-Public Use
  Company Number: PHHY2012CH010365

PATIENT
  Age: 51 Year
  Sex: Female

DRUGS (3)
  1. CYCLOSPORINE [Suspect]
     Indication: IMMUNOSUPPRESSION
     Dosage: 75 MG, BID
  2. PREDNISONE [Suspect]
     Indication: IMMUNOSUPPRESSION
     Dosage: 5 MG, UNK
  3. MYCOPHENOLATE MEFETIL [Suspect]
     Indication: IMMUNOSUPPRESSION
     Dosage: 500 MG, BID

REACTIONS (2)
  - KAPOSI'S SARCOMA [None]
  - HUMAN HERPESVIRUS 8 INFECTION [None]
